FAERS Safety Report 10885878 (Version 1)
Quarter: 2015Q1

REPORT INFORMATION
  Report Type: Spontaneous
  Country: US (occurrence: US)
  Receive Date: 20150304
  Receipt Date: 20150304
  Transmission Date: 20150721
  Serious: Yes (Death)
  Sender: FDA-Public Use
  Company Number: US-BANPHARM-20153538

PATIENT
  Age: 34 Year
  Sex: Male

DRUGS (9)
  1. DIPHENHYDRAMINE UNKNOWN PRODUCT [Suspect]
     Active Substance: DIPHENHYDRAMINE
  2. TRAMADOL [Suspect]
     Active Substance: TRAMADOL
  3. CLONAZEPAM. [Suspect]
     Active Substance: CLONAZEPAM
  4. ACETAMINOPHEN. [Suspect]
     Active Substance: ACETAMINOPHEN
  5. OXYCODONE [Suspect]
     Active Substance: OXYCODONE
  6. MEPROBAMATE. [Suspect]
     Active Substance: MEPROBAMATE
  7. METHADONE [Suspect]
     Active Substance: METHADONE HYDROCHLORIDE
  8. DIAZEPAM. [Suspect]
     Active Substance: DIAZEPAM
  9. CYCLOBENZAPRINE [Suspect]
     Active Substance: CYCLOBENZAPRINE

REACTIONS (2)
  - Drug abuse [Fatal]
  - Exposure via ingestion [None]
